FAERS Safety Report 4306363-X (Version None)
Quarter: 2004Q1

REPORT INFORMATION
  Report Type: 
  Country: None (occurrence: None)
  Receive Date: 20040225
  Receipt Date: 20030603
  Transmission Date: 20041129
  Serious: No
  Sender: FDA-Public Use
  Company Number: US-BRISTOL-MYERS SQUIBB COMPANY-12301206

PATIENT
  Age: 71 Year
  Sex: Female
  Weight: 68 kg

DRUGS (1)
  1. EXCEDRIN (MIGRAINE) [Suspect]
     Indication: SPINAL COLUMN STENOSIS
     Route: 048
     Dates: end: 20030101

REACTIONS (3)
  - HEADACHE [None]
  - NERVOUSNESS [None]
  - POLLAKIURIA [None]
